FAERS Safety Report 12899888 (Version 1)
Quarter: 2016Q4

REPORT INFORMATION
  Report Type: Spontaneous
  Country: GB (occurrence: GB)
  Receive Date: 20161101
  Receipt Date: 20161101
  Transmission Date: 20170207
  Serious: Yes (Life-Threatening, Other)
  Sender: FDA-Public Use
  Company Number: GB-BAYER-2016-208045

PATIENT
  Age: 29 Year
  Sex: Female
  Weight: 52 kg

DRUGS (2)
  1. LORATADINE. [Suspect]
     Active Substance: LORATADINE
     Indication: DUST ALLERGY
     Dosage: 10 MG, BID
     Route: 048
     Dates: start: 20160810, end: 20160826
  2. AVAMYS [Concomitant]
     Active Substance: FLUTICASONE FUROATE

REACTIONS (5)
  - Intentional self-injury [Unknown]
  - Agitation [Recovered/Resolved]
  - Depressed mood [Recovered/Resolved]
  - Mood swings [Recovered/Resolved]
  - Anger [Recovered/Resolved]

NARRATIVE: CASE EVENT DATE: 20160813
